FAERS Safety Report 4560682-0 (Version None)
Quarter: 2005Q1

REPORT INFORMATION
  Report Type: 
  Country: None (occurrence: None)
  Receive Date: 20050126
  Receipt Date: 20041210
  Transmission Date: 20050727
  Serious: Yes (Hospitalization, Other)
  Sender: FDA-Public Use
  Company Number: 200413863JP

PATIENT
  Age: 73 Year
  Sex: Male

DRUGS (4)
  1. TAXOTERE [Suspect]
     Indication: LUNG NEOPLASM MALIGNANT
     Route: 041
     Dates: start: 20041104, end: 20041104
  2. POLARAMIN [Concomitant]
     Indication: PROPHYLAXIS
     Dosage: DOSE: 2A
     Route: 041
     Dates: start: 20041104, end: 20041104
  3. DECADRON [Concomitant]
     Indication: PROPHYLAXIS
     Route: 041
     Dates: start: 20041104, end: 20041104
  4. KYTRIL [Concomitant]
     Indication: PROPHYLAXIS
     Dosage: DOSE: 1A
     Route: 041
     Dates: start: 20041104, end: 20041104

REACTIONS (7)
  - DERMATITIS [None]
  - ERYTHEMA [None]
  - PHLEBITIS [None]
  - PYREXIA [None]
  - SPUTUM ABNORMAL [None]
  - URINARY RETENTION [None]
  - WHITE BLOOD CELL COUNT DECREASED [None]
